FAERS Safety Report 7778091-X (Version None)
Quarter: 2011Q3

REPORT INFORMATION
  Report Type: 
  Country: None (occurrence: None)
  Receive Date: 20110922
  Receipt Date: 20110912
  Transmission Date: 20111222
  Serious: Yes (Hospitalization)
  Sender: FDA-Public Use
  Company Number: 11CN003174

PATIENT
  Age: 22 Year
  Sex: Male

DRUGS (1)
  1. VALPROIC ACID [Suspect]
     Indication: PRODUCT USED FOR UNKNOWN INDICATION
     Dosage: 50 G, ORAL
     Route: 048

REACTIONS (6)
  - HAEMODIALYSIS [None]
  - BRAIN OEDEMA [None]
  - HYPERAMMONAEMIA [None]
  - PUPILS UNEQUAL [None]
  - INTENTIONAL OVERDOSE [None]
  - SUBARACHNOID HAEMORRHAGE [None]
